FAERS Safety Report 12091845 (Version 2)
Quarter: 2016Q1

REPORT INFORMATION
  Report Type: Spontaneous
  Country: RO (occurrence: RO)
  Receive Date: 20160218
  Receipt Date: 20160323
  Transmission Date: 20160526
  Serious: Yes (Other)
  Sender: FDA-Public Use
  Company Number: RO-ABBVIE-16K-135-1559935-00

PATIENT
  Age: 58 Year
  Sex: Female

DRUGS (1)
  1. HUMIRA [Suspect]
     Active Substance: ADALIMUMAB
     Indication: ANKYLOSING SPONDYLITIS
     Dosage: TEMPORARILY DISCONTINUED
     Route: 058
     Dates: start: 20100305, end: 20160210

REACTIONS (5)
  - Encephalitis [Unknown]
  - Arnold-Chiari malformation [Unknown]
  - Hemiparesis [Unknown]
  - Brain neoplasm [Unknown]
  - Hydrocephalus [Unknown]

NARRATIVE: CASE EVENT DATE: 2013
